FAERS Safety Report 4527395-2 (Version None)
Quarter: 2004Q4

REPORT INFORMATION
  Report Type: 
  Country: None (occurrence: None)
  Receive Date: 20041130
  Receipt Date: 20040901
  Transmission Date: 20050328
  Serious: No
  Sender: FDA-Public Use
  Company Number: WAES 0409USA00207

PATIENT
  Sex: Female

DRUGS (4)
  1. ZETIA [Suspect]
     Indication: HYPERCHOLESTEROLAEMIA
     Dosage: 10 MG/DAILY/PO
     Route: 048
     Dates: start: 20040407
  2. PRINIVIL [Concomitant]
  3. ZANTAC [Concomitant]
  4. GEMFIBROZIL [Concomitant]

REACTIONS (1)
  - EYE HAEMORRHAGE [None]
